FAERS Safety Report 12283448 (Version 5)
Quarter: 2016Q2

REPORT INFORMATION
  Report Type: Spontaneous
  Country: US (occurrence: US)
  Receive Date: 20160419
  Receipt Date: 20160525
  Transmission Date: 20160815
  Serious: Yes (Hospitalization)
  Sender: FDA-Public Use
  Company Number: US-ACTELION-A-NJ2016-134650

PATIENT
  Age: 47 Year
  Sex: Female

DRUGS (1)
  1. VELETRI [Suspect]
     Active Substance: EPOPROSTENOL
     Indication: PULMONARY ARTERIAL HYPERTENSION
     Dosage: 14 NG/KG, PER MIN
     Route: 042
     Dates: start: 20130916

REACTIONS (7)
  - Limb discomfort [Recovering/Resolving]
  - Asthenia [Recovering/Resolving]
  - Chest pain [Unknown]
  - Drug dose omission [Recovering/Resolving]
  - Asthma [Recovering/Resolving]
  - Lethargy [Recovering/Resolving]
  - Headache [Not Recovered/Not Resolved]

NARRATIVE: CASE EVENT DATE: 20160516
